FAERS Safety Report 6165116-0 (Version None)
Quarter: 2009Q2

REPORT INFORMATION
  Report Type: 
  Country: None (occurrence: None)
  Receive Date: 20090423
  Receipt Date: 20090416
  Transmission Date: 20091009
  Serious: No
  Sender: FDA-Public Use
  Company Number: US-B.I. PHARMACEUTICALS,INC./RIDGEFIELD-2009-BP-04878BP

PATIENT
  Sex: Female

DRUGS (1)
  1. ZANTAC 150 [Suspect]
     Dosage: 600MG
     Route: 048

REACTIONS (3)
  - ACCIDENTAL OVERDOSE [None]
  - DIARRHOEA [None]
  - NASOPHARYNGITIS [None]
